FAERS Safety Report 24391057 (Version 2)
Quarter: 2024Q4

REPORT INFORMATION
  Report Type: Spontaneous
  Country: FR (occurrence: FR)
  Receive Date: 20241003
  Receipt Date: 20241031
  Transmission Date: 20250114
  Serious: Yes (Other)
  Sender: ABBVIE
  Company Number: FR-ABBVIE-5947156

PATIENT
  Sex: Male

DRUGS (1)
  1. RINVOQ [Suspect]
     Active Substance: UPADACITINIB
     Indication: Crohn^s disease
     Dosage: FORM STRENGTH: 45 MILLIGRAM
     Route: 048
     Dates: start: 202409

REACTIONS (4)
  - Sepsis [Unknown]
  - Gastrointestinal perforation [Unknown]
  - Stenosis [Unknown]
  - Adenocarcinoma [Unknown]

NARRATIVE: CASE EVENT DATE: 20240101
